FAERS Safety Report 7821598-7 (Version None)
Quarter: 2011Q4

REPORT INFORMATION
  Report Type: 
  Country: None (occurrence: None)
  Receive Date: 20111018
  Receipt Date: 20110728
  Transmission Date: 20120403
  Serious: No
  Sender: FDA-Public Use
  Company Number: US-ASTRAZENECA-2011SE45547

PATIENT

DRUGS (1)
  1. SYMBICORT [Suspect]
     Dosage: 2 PUFFS IN THE MORNING
     Route: 055

REACTIONS (2)
  - CHEST DISCOMFORT [None]
  - INAPPROPRIATE SCHEDULE OF DRUG ADMINISTRATION [None]
